FAERS Safety Report 10167055 (Version 1)
Quarter: 2014Q2

REPORT INFORMATION
  Report Type: Spontaneous
  Country: US (occurrence: None)
  Receive Date: 20140509
  Receipt Date: 20140509
  Transmission Date: 20141212
  Serious: Yes (Hospitalization)
  Sender: FDA-Public Use
  Company Number: None

PATIENT
  Age: 71 Year
  Sex: Female
  Weight: 55.79 kg

DRUGS (1)
  1. DEXILANT [Suspect]
     Indication: GASTROOESOPHAGEAL REFLUX DISEASE
     Route: 048
     Dates: start: 20131105, end: 20131212

REACTIONS (7)
  - Renal failure [None]
  - Diarrhoea [None]
  - Retching [None]
  - Abdominal pain upper [None]
  - Dizziness [None]
  - Somnolence [None]
  - Drug hypersensitivity [None]
